FAERS Safety Report 7609331-5 (Version None)
Quarter: 2011Q3

REPORT INFORMATION
  Report Type: 
  Country: None (occurrence: None)
  Receive Date: 20110714
  Receipt Date: 20110704
  Transmission Date: 20111222
  Serious: Yes (Death, Other)
  Sender: FDA-Public Use
  Company Number: PHHY2011QA59806

PATIENT
  Age: 30 Year
  Sex: Male

DRUGS (1)
  1. OXCARBAZEPINE [Suspect]
     Indication: DYSKINESIA
     Dosage: 300 MG, BID

REACTIONS (6)
  - VENTRICULAR FIBRILLATION [None]
  - VENTRICULAR TACHYARRHYTHMIA [None]
  - BLOOD POTASSIUM DECREASED [None]
  - SUDDEN CARDIAC DEATH [None]
  - LOSS OF CONSCIOUSNESS [None]
  - CONCOMITANT DISEASE AGGRAVATED [None]
